FAERS Safety Report 23397257 (Version 1)
Quarter: 2024Q1

REPORT INFORMATION
  Report Type: Spontaneous
  Country: US (occurrence: US)
  Receive Date: 20240112
  Receipt Date: 20240112
  Transmission Date: 20240409
  Serious: Yes (Hospitalization, Other)
  Sender: FDA-Public Use
  Company Number: US-HIKMA PHARMACEUTICALS USA INC.-US-H14001-24-00256

PATIENT
  Sex: Male

DRUGS (1)
  1. BUPRENORPHINE [Suspect]
     Active Substance: BUPRENORPHINE
     Indication: Pain
     Dosage: 12 MILLIGRAM, QD
     Route: 065

REACTIONS (15)
  - Palpitations [Unknown]
  - Fluid retention [Unknown]
  - Neuralgia [Unknown]
  - Somnolence [Unknown]
  - Skin discolouration [Unknown]
  - Altered state of consciousness [Unknown]
  - Irregular breathing [Unknown]
  - Hypopnoea [Unknown]
  - Hyperhidrosis [Unknown]
  - Disturbance in attention [Unknown]
  - Chest pain [Unknown]
  - Sticky skin [Unknown]
  - Dyspnoea [Unknown]
  - Heart rate irregular [Unknown]
  - Peripheral swelling [Unknown]
